FAERS Safety Report 24176346 (Version 1)
Quarter: 2024Q3

REPORT INFORMATION
  Report Type: Spontaneous
  Country: EG (occurrence: EG)
  Receive Date: 20240806
  Receipt Date: 20240806
  Transmission Date: 20241017
  Serious: Yes (Hospitalization, Disabling, Other)
  Sender: NOVO NORDISK
  Company Number: EG-NOVOPROD-1261713

PATIENT
  Age: 35 Year
  Sex: Male

DRUGS (8)
  1. NOVORAPID [Suspect]
     Active Substance: INSULIN ASPART
     Indication: Type 1 diabetes mellitus
     Dosage: 30 IU, BID
  2. JUSPRIN [Concomitant]
     Indication: Anticoagulant therapy
     Dosage: 1 TAB/DAY
     Route: 048
  3. BENFOTIAMINE\CYANOCOBALAMIN\PYRIDOXINE HYDROCHLORIDE [Concomitant]
     Active Substance: BENFOTIAMINE\CYANOCOBALAMIN\PYRIDOXINE HYDROCHLORIDE
     Indication: Product used for unknown indication
     Dosage: 1TAB/DAY
     Route: 048
  4. AMOXICILLIN\CLAVULANIC ACID [Concomitant]
     Active Substance: AMOXICILLIN\CLAVULANIC ACID
     Indication: Product used for unknown indication
     Dosage: 2TAB/DAY
     Route: 048
     Dates: start: 20240703
  5. LEVOFLOXACIN [Concomitant]
     Active Substance: LEVOFLOXACIN
     Indication: Product used for unknown indication
     Dosage: 1TAB/DAY
     Route: 048
     Dates: start: 20240703
  6. DICLOFENAC SODIUM [Concomitant]
     Active Substance: DICLOFENAC\DICLOFENAC SODIUM
     Indication: Antiinflammatory therapy
     Dosage: 2 TAB/DAY
     Route: 048
     Dates: start: 20240703
  7. AMBEZIM [Concomitant]
     Indication: Antiinflammatory therapy
     Dosage: 2 TAB/DAY
     Route: 048
     Dates: start: 20240703
  8. LANTUS [Concomitant]
     Active Substance: INSULIN GLARGINE
     Indication: Diabetes mellitus
     Dosage: 40 IU, QD (40 U DAILY AT 12 AM)
     Route: 058

REACTIONS (1)
  - Road traffic accident [Unknown]
